FAERS Safety Report 6094633-7 (Version None)
Quarter: 2009Q1

REPORT INFORMATION
  Report Type: 
  Country: None (occurrence: None)
  Receive Date: 20090226
  Receipt Date: 20090213
  Transmission Date: 20090719
  Serious: Yes (Life-Threatening, Hospitalization)
  Sender: FDA-Public Use
  Company Number: CH-GENENTECH-277695

PATIENT
  Age: 77 Year
  Sex: Female

DRUGS (3)
  1. MABTHERA [Suspect]
     Indication: RHEUMATOID ARTHRITIS
     Dosage: UNK
     Route: 042
     Dates: start: 20080501
  2. PREDNISONE [Concomitant]
     Indication: DRUG USE FOR UNKNOWN INDICATION
     Dosage: UNK
  3. LEFLUNOMIDE [Concomitant]
     Indication: DRUG USE FOR UNKNOWN INDICATION
     Dosage: UNK
     Dates: start: 20071001, end: 20080901

REACTIONS (1)
  - INTESTINAL ISCHAEMIA [None]
